FAERS Safety Report 4295011-3 (Version None)
Quarter: 2004Q1

REPORT INFORMATION
  Report Type: 
  Country: None (occurrence: None)
  Receive Date: 20040216
  Receipt Date: 20040201
  Transmission Date: 20041129
  Serious: Yes (Other)
  Sender: FDA-Public Use
  Company Number: PHNU2004DE00766

PATIENT
  Sex: Male

DRUGS (21)
  1. TEGRETOL [Suspect]
     Indication: EPILEPSY
     Dosage: 400 MG, QOD
     Route: 048
     Dates: start: 19850101, end: 20020101
  2. ZENTROPIL [Concomitant]
     Indication: EPILEPSY
     Dosage: 3DF/DAY
     Route: 065
     Dates: start: 19770101, end: 19850101
  3. ERGENYL ^SANOFI-SYNTHELABO^ [Suspect]
     Route: 065
  4. NEURONTIN [Suspect]
     Route: 065
  5. LAMICTAL [Concomitant]
     Indication: EPILEPSY
     Route: 065
  6. GABITRIL [Suspect]
     Dosage: 60MG/DAY
     Route: 048
     Dates: start: 19990101, end: 19990101
  7. TOPAMAX [Suspect]
     Dosage: 100MG/DAY
     Route: 048
     Dates: start: 20000101
  8. KEPPRA [Concomitant]
     Dosage: 1000 - 1500MG/DAY
     Route: 065
     Dates: start: 20031101
  9. CARBABETA [Suspect]
     Indication: EPILEPSY
     Dosage: 400 MG, QID
     Route: 048
     Dates: start: 20020101
  10. NACOM ^DUPONT PHARMA^ [Concomitant]
     Indication: EPILEPSY
     Route: 065
  11. MOVERGAN [Suspect]
     Indication: PARKINSON'S DISEASE
     Dosage: 1DF/DAY
     Route: 048
     Dates: start: 19960101
  12. MADOPAR [Suspect]
     Indication: PARKINSON'S DISEASE
     Dosage: 62.5 MG, TID
     Route: 048
     Dates: start: 19950101, end: 19990101
  13. LEVODOPA [Suspect]
     Indication: PARKINSON'S DISEASE
     Route: 048
     Dates: start: 19990101
  14. AMANTADIN [Suspect]
     Route: 048
  15. COMTESS [Suspect]
     Indication: PARKINSON'S DISEASE
     Dosage: 200 MG, QID
     Route: 048
     Dates: start: 20010101
  16. PARKOTIL [Suspect]
     Indication: PARKINSON'S DISEASE
     Dosage: 0.20MG/DAY
     Route: 048
     Dates: start: 19960101, end: 19970101
  17. PARKOTIL [Suspect]
     Dosage: 1MG/DAY
     Route: 048
     Dates: start: 19970101
  18. PHENYTOIN SODIUM [Concomitant]
  19. TASMAR [Concomitant]
     Dates: start: 19970101, end: 19970101
  20. SELEGILINE HCL [Concomitant]
     Dosage: 5MG/DAY
     Dates: start: 19990101, end: 19990101
  21. REMERGIL [Concomitant]
     Dosage: 15MG/DAY
     Route: 048
     Dates: start: 20020101

REACTIONS (31)
  - ABNORMAL BEHAVIOUR [None]
  - ALOPECIA [None]
  - ANOSMIA [None]
  - BRADYPHRENIA [None]
  - CHILLS [None]
  - CONDITION AGGRAVATED [None]
  - COORDINATION ABNORMAL [None]
  - DEPRESSION [None]
  - DIFFICULTY IN WALKING [None]
  - DISTURBANCE IN ATTENTION [None]
  - DRUG INTERACTION [None]
  - DYSKINESIA [None]
  - ERECTILE DYSFUNCTION [None]
  - FALL [None]
  - FATIGUE [None]
  - GAIT DISTURBANCE [None]
  - GRAND MAL CONVULSION [None]
  - MEMORY IMPAIRMENT [None]
  - MENTAL IMPAIRMENT [None]
  - MOTOR DYSFUNCTION [None]
  - MOVEMENT DISORDER [None]
  - MUSCLE CRAMP [None]
  - MUSCLE TWITCHING [None]
  - MYALGIA [None]
  - NERVE CONDUCTION STUDIES ABNORMAL [None]
  - NEUROLEPTIC MALIGNANT SYNDROME [None]
  - PARALYSIS [None]
  - PARKINSON'S DISEASE [None]
  - SALIVARY HYPERSECRETION [None]
  - SIMPLE PARTIAL SEIZURES [None]
  - TREMOR [None]
